FAERS Safety Report 10497442 (Version 3)
Quarter: 2016Q3

REPORT INFORMATION
  Report Type: Spontaneous
  Country: US (occurrence: US)
  Receive Date: 20141006
  Receipt Date: 20160824
  Transmission Date: 20161109
  Serious: No
  Sender: FDA-Public Use
  Company Number: US-JNJFOC-20141002114

PATIENT
  Sex: Male

DRUGS (2)
  1. HALDOL [Suspect]
     Active Substance: HALOPERIDOL
     Indication: PRODUCT USED FOR UNKNOWN INDICATION
     Route: 065
  2. RISPERDAL [Suspect]
     Active Substance: RISPERIDONE
     Indication: ABNORMAL BEHAVIOUR
     Route: 048

REACTIONS (6)
  - Galactorrhoea [Unknown]
  - Lethargy [Unknown]
  - Hyperprolactinaemia [Unknown]
  - Overweight [Not Recovered/Not Resolved]
  - Depression [Recovering/Resolving]
  - Gynaecomastia [Unknown]
